FAERS Safety Report 5513137-0 (Version None)
Quarter: 2007Q4

REPORT INFORMATION
  Report Type: 
  Country: None (occurrence: None)
  Receive Date: 20071108
  Receipt Date: 20071024
  Transmission Date: 20080405
  Serious: Yes (Other)
  Sender: FDA-Public Use
  Company Number: S07-FRA-05814-01

PATIENT
  Age: 42 Year
  Sex: Male

DRUGS (5)
  1. ESCITALOPRAM [Suspect]
     Dosage: 20 MG QD; PO
     Route: 048
     Dates: start: 20060101
  2. ABILIFY [Concomitant]
  3. DEPAKOTE [Concomitant]
  4. NEXIUM [Concomitant]
  5. XALATAN [Concomitant]

REACTIONS (2)
  - INTRAOCULAR PRESSURE INCREASED [None]
  - VISUAL FIELD DEFECT [None]
